FAERS Safety Report 15801375 (Version 2)
Quarter: 2019Q1

REPORT INFORMATION
  Report Type: Spontaneous
  Country: US (occurrence: US)
  Receive Date: 20190109
  Receipt Date: 20190128
  Transmission Date: 20190417
  Serious: Yes (Other)
  Sender: FDA-Public Use
  Company Number: US-AUROBINDO-AUR-APL-2019-000868

PATIENT
  Age: 57 Year
  Sex: Male

DRUGS (4)
  1. CAPECITABINE. [Suspect]
     Active Substance: CAPECITABINE
     Indication: METASTASES TO LUNG
     Dosage: ADJUVANT CHEMO-RADIATION WITH CAPECITABINE
     Route: 065
  2. CAPECITABINE. [Suspect]
     Active Substance: CAPECITABINE
     Indication: METASTASES TO LIVER
     Dosage: XELOX-BEVACIZUMAB (CAPECITABINE 850 MG/M^2 BID FOR 14 DAYS EVERY 21 DAYS)
     Route: 065
  3. CAPECITABINE. [Suspect]
     Active Substance: CAPECITABINE
     Indication: COLORECTAL CANCER METASTATIC
     Dosage: MAINTENANCE SINGLE-AGENT CAPECITABINE FOR NEARLY 3 YEARS
     Route: 065
  4. CAPECITABINE. [Suspect]
     Active Substance: CAPECITABINE
     Dosage: RESUMED SINGLE-AGENT CAPECITABINE 850 MG/M^2 BID FOR 14 DAYS EVERY 21 DAYS
     Route: 065

REACTIONS (1)
  - Hypertriglyceridaemia [Recovering/Resolving]
